FAERS Safety Report 12332628 (Version 1)
Quarter: 2016Q2

REPORT INFORMATION
  Report Type: Spontaneous
  Country: US (occurrence: US)
  Receive Date: 20160504
  Receipt Date: 20160504
  Transmission Date: 20160815
  Serious: No
  Sender: FDA-Public Use
  Company Number: US-PFIZER INC-2016207839

PATIENT
  Age: 57 Year
  Sex: Female
  Weight: 80 kg

DRUGS (2)
  1. LYRICA [Suspect]
     Active Substance: PREGABALIN
     Dosage: 150 MG, 2X/DAY (150 MG IN THE MORNING AND 150 MG IN THE EVENING)
     Dates: start: 2015
  2. LYRICA [Suspect]
     Active Substance: PREGABALIN
     Indication: FIBROMYALGIA
     Dosage: 100 MG, 2X/DAY
     Route: 048
     Dates: start: 2007

REACTIONS (8)
  - Somnolence [Unknown]
  - Drug ineffective [Unknown]
  - Headache [Unknown]
  - Crying [Unknown]
  - Pain in extremity [Not Recovered/Not Resolved]
  - Pain [Unknown]
  - Condition aggravated [Unknown]
  - Fatigue [Unknown]
